FAERS Safety Report 24068166 (Version 1)
Quarter: 2024Q3

REPORT INFORMATION
  Report Type: Spontaneous
  Country: JP (occurrence: JP)
  Receive Date: 20240710
  Receipt Date: 20240710
  Transmission Date: 20241016
  Serious: Yes (Hospitalization)
  Sender: ROCHE
  Company Number: JP-002147023-NVSJ2024JP008119

PATIENT
  Age: 16 Year

DRUGS (1)
  1. XOLAIR [Suspect]
     Active Substance: OMALIZUMAB
     Indication: Urticaria cholinergic
     Dosage: 300 MG
     Route: 050

REACTIONS (2)
  - Ketoacidosis [Unknown]
  - Physical deconditioning [Unknown]
